FAERS Safety Report 4500408-X (Version None)
Quarter: 2004Q4

REPORT INFORMATION
  Report Type: 
  Country: None (occurrence: None)
  Receive Date: 20041112
  Receipt Date: 20041108
  Transmission Date: 20050328
  Serious: Yes (Other)
  Sender: FDA-Public Use
  Company Number: US-MERCK-0411USA01477

PATIENT
  Age: 44 Year
  Sex: Male

DRUGS (4)
  1. VIOXX [Suspect]
     Indication: PAIN
     Route: 065
     Dates: start: 20040706, end: 20040101
  2. VYTORIN [Concomitant]
     Route: 065
  3. LEXAPRO [Concomitant]
     Route: 065
  4. NEXIUM [Concomitant]
     Route: 065

REACTIONS (3)
  - CEREBROVASCULAR ACCIDENT [None]
  - PARAESTHESIA [None]
  - RASH GENERALISED [None]
